FAERS Safety Report 8950444 (Version 2)
Quarter: 2013Q1

REPORT INFORMATION
  Report Type: Spontaneous
  Country: US (occurrence: US)
  Receive Date: 20121206
  Receipt Date: 20130122
  Transmission Date: 20140127
  Serious: Yes (Hospitalization, Other)
  Sender: FDA-Public Use
  Company Number: US-PFIZER INC-2012307614

PATIENT
  Age: 62 Year
  Sex: Female
  Weight: 70.3 kg

DRUGS (13)
  1. LYRICA [Suspect]
     Indication: PAIN IN EXTREMITY
     Dosage: 50 MG, 3X/DAY
     Route: 048
  2. LOPID [Suspect]
     Indication: BLOOD TRIGLYCERIDES INCREASED
     Dosage: 600 MG, 1X/DAY
     Route: 048
  3. NITROSTAT [Suspect]
     Indication: CHEST PAIN
     Dosage: UNK
  4. CRESTOR [Concomitant]
     Dosage: UNK
  5. LORTAB [Concomitant]
     Dosage: UNK
  6. LASIX [Concomitant]
     Dosage: UNK
  7. BACLOFEN [Concomitant]
     Dosage: UNK
  8. CELEXA [Concomitant]
     Indication: DEPRESSION
     Dosage: UNK
  9. PLAVIX [Concomitant]
     Dosage: UNK
  10. TRAZODONE [Concomitant]
     Dosage: UNK
  11. COREG [Concomitant]
     Dosage: UNK
  12. XANAX [Concomitant]
     Dosage: UNK
  13. MORPHINE [Concomitant]
     Dosage: UNK

REACTIONS (3)
  - Cardiac disorder [Unknown]
  - Chest pain [Unknown]
  - Malaise [Unknown]
